FAERS Safety Report 23435443 (Version 1)
Quarter: 2024Q1

REPORT INFORMATION
  Report Type: Report from Study
  Country: NL (occurrence: NL)
  Receive Date: 20240124
  Receipt Date: 20240124
  Transmission Date: 20240409
  Serious: Yes (Death)
  Sender: FDA-Public Use
  Company Number: NL-ABBVIE-5603352

PATIENT
  Age: 74 Year
  Sex: Male

DRUGS (7)
  1. CARBIDOPA\LEVODOPA [Suspect]
     Active Substance: CARBIDOPA\LEVODOPA
     Indication: Parkinson^s disease
     Dosage: MD: 19.0 ML, CD: 3.5 ML/H, ED: 2.9 ML?REMAINS AT 16 HOURS
     Route: 050
     Dates: start: 20231006, end: 20231215
  2. CARBIDOPA\LEVODOPA [Suspect]
     Active Substance: CARBIDOPA\LEVODOPA
     Dosage: MD: 19.0 ML, CD: 3.8 ML/H, ED: 3.0 ML?REMAINS AT 16 HOURS
     Route: 050
     Dates: start: 20231215, end: 20231227
  3. CARBIDOPA\LEVODOPA [Suspect]
     Active Substance: CARBIDOPA\LEVODOPA
     Dosage: REMAINS AT 16 HOURS
     Route: 050
     Dates: start: 20220315
  4. CARBIDOPA\LEVODOPA [Suspect]
     Active Substance: CARBIDOPA\LEVODOPA
     Dosage: MD: 19.0 ML, CD: 4.1 ML/H, ED: 3.0 ML?REMAINS AT 16 HOURS
     Route: 050
     Dates: start: 20231227, end: 20240105
  5. CARBIDOPA\LEVODOPA [Suspect]
     Active Substance: CARBIDOPA\LEVODOPA
     Dosage: MD: 19.0 ML, CD: 4.4 ML/H, ED: 5.0 ML?REMAINS AT 16 HOURS
     Route: 050
     Dates: start: 20240105, end: 20240115
  6. CARBIDOPA\LEVODOPA [Suspect]
     Active Substance: CARBIDOPA\LEVODOPA
     Dosage: MD: 19.0 ML, CD: 3.5 ML/H, ED: 2.9 ML?REMAINS AT 16 HOURS
     Route: 050
     Dates: start: 20230720, end: 20231006
  7. POLYETHYLENE GLYCOLS [Concomitant]
     Active Substance: POLYETHYLENE GLYCOLS
     Indication: Gastrointestinal motility disorder

REACTIONS (1)
  - Death [Fatal]
